FAERS Safety Report 19170214 (Version 4)
Quarter: 2021Q3

REPORT INFORMATION
  Report Type: Spontaneous
  Country: US (occurrence: US)
  Receive Date: 20210422
  Receipt Date: 20210902
  Transmission Date: 20211014
  Serious: Yes (Other)
  Sender: FDA-Public Use
  Company Number: US-PFIZER INC-2021344282

PATIENT
  Age: 69 Year
  Sex: Female
  Weight: 90.7 kg

DRUGS (7)
  1. IBRANCE [Suspect]
     Active Substance: PALBOCICLIB
     Dosage: 100 MG, 1X/DAY
     Dates: start: 201903
  2. IBRANCE [Suspect]
     Active Substance: PALBOCICLIB
     Indication: BREAST CANCER METASTATIC
     Dosage: 125 MG
     Dates: start: 2018
  3. PENTOXIFYLLINE. [Concomitant]
     Active Substance: PENTOXIFYLLINE
     Indication: NONINFECTIVE ENCEPHALITIS
     Dosage: 400 MG, 2X/DAY
     Dates: start: 202104
  4. VITAMIN E NOS [Concomitant]
     Active Substance: .ALPHA.-TOCOPHEROL
     Dosage: 450 MG, 2X/DAY
     Dates: start: 202104
  5. LETROZOLE. [Concomitant]
     Active Substance: LETROZOLE
     Dosage: UNK
     Dates: start: 201903
  6. LOSARTAN. [Concomitant]
     Active Substance: LOSARTAN
  7. IBRANCE [Suspect]
     Active Substance: PALBOCICLIB
     Dosage: 100 MG, CYCLIC (100MG ONE A DAY THREE WEEKS OFF ONE WEEK)

REACTIONS (20)
  - Eyelid disorder [Not Recovered/Not Resolved]
  - Fatigue [Not Recovered/Not Resolved]
  - Oedema peripheral [Unknown]
  - Nerve injury [Unknown]
  - Bell^s palsy [Unknown]
  - Abnormal sensation in eye [Not Recovered/Not Resolved]
  - Dyspnoea [Unknown]
  - Condition aggravated [Unknown]
  - Dry eye [Not Recovered/Not Resolved]
  - White blood cell count decreased [Unknown]
  - Balance disorder [Unknown]
  - Asthenia [Not Recovered/Not Resolved]
  - Muscular weakness [Unknown]
  - Eye movement disorder [Not Recovered/Not Resolved]
  - Blindness [Unknown]
  - Blood test abnormal [Unknown]
  - Haematocrit decreased [Unknown]
  - Dysarthria [Not Recovered/Not Resolved]
  - Brain oedema [Unknown]
  - Peripheral swelling [Unknown]

NARRATIVE: CASE EVENT DATE: 2020
